FAERS Safety Report 8343013-X (Version None)
Quarter: 2012Q2

REPORT INFORMATION
  Report Type: 
  Country: None (occurrence: None)
  Receive Date: 20120504
  Receipt Date: 20120504
  Transmission Date: 20120825
  Serious: Yes (Death, Hospitalization)
  Sender: FDA-Public Use
  Company Number: None

PATIENT
  Sex: Female
  Weight: 45 kg

DRUGS (7)
  1. VINCRISTINE SULFATE [Suspect]
     Dosage: 2 MG
     Dates: end: 20120222
  2. ETOPOSIDE [Suspect]
     Dates: end: 20120102
  3. DOXORUBICIN HYDROCHLORIDE [Suspect]
     Dates: end: 20120106
  4. TEMOZOLOMIDE [Suspect]
     Dosage: 150 MG
     Dates: end: 20120210
  5. TEMOZOLOMIDE [Suspect]
     Dates: end: 20120210
  6. IFOSFAMIDE [Suspect]
     Dates: end: 20120120
  7. IRINOTECAN HCL [Suspect]
     Dates: end: 20120209

REACTIONS (13)
  - HYPOVOLAEMIC SHOCK [None]
  - ASCITES [None]
  - COAGULOPATHY [None]
  - CLOSTRIDIUM DIFFICILE COLITIS [None]
  - ACUTE RESPIRATORY DISTRESS SYNDROME [None]
  - DISTRIBUTIVE SHOCK [None]
  - RESPIRATORY FAILURE [None]
  - HEPATIC ENZYME INCREASED [None]
  - PORTAL VEIN THROMBOSIS [None]
  - BLOOD BILIRUBIN INCREASED [None]
  - CAECITIS [None]
  - VENOOCCLUSIVE LIVER DISEASE [None]
  - GASTROINTESTINAL HAEMORRHAGE [None]
